FAERS Safety Report 6668792-9 (Version None)
Quarter: 2010Q2

REPORT INFORMATION
  Report Type: 
  Country: None (occurrence: None)
  Receive Date: 20100406
  Receipt Date: 20100323
  Transmission Date: 20101027
  Serious: Yes (Death, Other)
  Sender: FDA-Public Use
  Company Number: US-BAYER-201020478GPV

PATIENT
  Age: 60 Year
  Sex: Male

DRUGS (2)
  1. FLUDARABINE PHOSPHATE [Suspect]
     Indication: BONE MARROW CONDITIONING REGIMEN
  2. CYCLOPHOSPHAMIDE [Concomitant]
     Indication: BONE MARROW CONDITIONING REGIMEN

REACTIONS (5)
  - MALIGNANT MELANOMA [None]
  - NEUROTOXICITY [None]
  - OCULAR TOXICITY [None]
  - OPTIC ATROPHY [None]
  - VISUAL IMPAIRMENT [None]
